FAERS Safety Report 13657265 (Version 6)
Quarter: 2017Q3

REPORT INFORMATION
  Report Type: Spontaneous
  Country: JP (occurrence: JP)
  Receive Date: 20170615
  Receipt Date: 20170717
  Transmission Date: 20171127
  Serious: Yes (Hospitalization, Other)
  Sender: FDA-Public Use
  Company Number: PHJP2017JP019445

PATIENT
  Age: 76 Year
  Sex: Male

DRUGS (14)
  1. TRUSOPT [Suspect]
     Active Substance: DORZOLAMIDE HYDROCHLORIDE
     Indication: OPEN ANGLE GLAUCOMA
     Dosage: UNK
     Route: 047
     Dates: end: 201506
  2. BRIMONIDINE [Concomitant]
     Active Substance: BRIMONIDINE TARTRATE
     Indication: PRODUCT USED FOR UNKNOWN INDICATION
     Dosage: UNK
     Route: 047
  3. PIVALEPHRINE [Suspect]
     Active Substance: DIPIVEFRIN HYDROCHLORIDE
     Dosage: UNK
     Route: 047
  4. LUMIGAN [Suspect]
     Active Substance: BIMATOPROST
     Indication: OPEN ANGLE GLAUCOMA
     Dosage: UNK
     Route: 047
     Dates: end: 201506
  5. GLANATEC [Concomitant]
     Active Substance: RIPASUDIL HYDROCHLORIDE DIHYDRATE
     Indication: OPEN ANGLE GLAUCOMA
     Dosage: UNK
     Route: 065
  6. DETANTOL [Suspect]
     Active Substance: BUNAZOSIN HYDROCHLORIDE
     Dosage: UNK
     Route: 047
  7. LUMIGAN [Suspect]
     Active Substance: BIMATOPROST
     Dosage: UNK
     Route: 047
  8. BETOPTIC [Suspect]
     Active Substance: BETAXOLOL HYDROCHLORIDE
     Dosage: 1 GTT, UNK
     Route: 047
     Dates: start: 201508
  9. METHYCOBAL [Suspect]
     Active Substance: METHYLCOBALAMIN
     Dosage: UNK
     Route: 047
  10. BETOPTIC [Suspect]
     Active Substance: BETAXOLOL HYDROCHLORIDE
     Indication: OPEN ANGLE GLAUCOMA
     Dosage: 1 GTT, UNK
     Route: 047
     Dates: start: 200912, end: 201507
  11. PIVALEPHRINE [Suspect]
     Active Substance: DIPIVEFRIN HYDROCHLORIDE
     Indication: OPEN ANGLE GLAUCOMA
     Dosage: UNK
     Route: 047
     Dates: end: 201506
  12. DETANTOL [Suspect]
     Active Substance: BUNAZOSIN HYDROCHLORIDE
     Indication: OPEN ANGLE GLAUCOMA
     Dosage: UNK
     Route: 047
     Dates: end: 201506
  13. TRUSOPT [Suspect]
     Active Substance: DORZOLAMIDE HYDROCHLORIDE
     Dosage: UNK
     Route: 047
  14. METHYCOBAL [Suspect]
     Active Substance: METHYLCOBALAMIN
     Indication: OPEN ANGLE GLAUCOMA
     Dosage: UNK
     Route: 047
     Dates: end: 201506

REACTIONS (4)
  - Eye disorder [Recovering/Resolving]
  - Corneal disorder [Recovered/Resolved]
  - Intraocular pressure increased [Recovering/Resolving]
  - Punctate keratitis [Recovering/Resolving]

NARRATIVE: CASE EVENT DATE: 20150605
